FAERS Safety Report 4734135-0 (Version None)
Quarter: 2005Q3

REPORT INFORMATION
  Report Type: 
  Country: None (occurrence: None)
  Receive Date: 20050803
  Receipt Date: 20050803
  Transmission Date: 20060218
  Serious: Yes (Hospitalization)
  Sender: FDA-Public Use
  Company Number: None

PATIENT
  Age: 72 Year
  Sex: Female
  Weight: 54.8852 kg

DRUGS (1)
  1. OMNIPAQUE  IOHEXAL /NOVA PLUS [Suspect]
     Dates: start: 20050802

REACTIONS (4)
  - ANAPHYLACTIC REACTION [None]
  - CARDIOPULMONARY FAILURE [None]
  - DYSPNOEA [None]
  - HYPOTENSION [None]
